FAERS Safety Report 5701930-0 (Version None)
Quarter: 2008Q2

REPORT INFORMATION
  Report Type: 
  Country: None (occurrence: None)
  Receive Date: 20080411
  Receipt Date: 20080403
  Transmission Date: 20081010
  Serious: Yes (Other)
  Sender: FDA-Public Use
  Company Number: PHBS2007FI20243

PATIENT
  Sex: Female
  Weight: 45 kg

DRUGS (3)
  1. ZOMETA [Suspect]
     Indication: OSTEOPOROSIS
     Dosage: 4MG, TWICE A YEAR
     Dates: start: 20030101, end: 20050101
  2. FOSAMAX [Suspect]
     Dates: start: 20000101, end: 20030101
  3. MIACALCIN [Concomitant]

REACTIONS (4)
  - APHTHOUS STOMATITIS [None]
  - NODULE [None]
  - OSTEONECROSIS [None]
  - WOUND [None]
